FAERS Safety Report 5822373-5 (Version None)
Quarter: 2008Q3

REPORT INFORMATION
  Report Type: 
  Country: None (occurrence: None)
  Receive Date: 20080725
  Receipt Date: 20080715
  Transmission Date: 20090109
  Serious: Yes (Death, Hospitalization)
  Sender: FDA-Public Use
  Company Number: US-JNJFOC-20080500152

PATIENT
  Sex: Male
  Weight: 83.46 kg

DRUGS (24)
  1. REMICADE [Suspect]
     Indication: RHEUMATOID ARTHRITIS
     Route: 042
  2. COZAAR [Concomitant]
  3. METHOTREXATE SODIUM [Concomitant]
  4. REQUIP [Concomitant]
  5. ZETIA [Concomitant]
  6. AMBIEN [Concomitant]
  7. VERAPAMIL [Concomitant]
  8. METHYLPREDNISOLONE [Concomitant]
  9. ZOCOR [Concomitant]
  10. TRICOR [Concomitant]
  11. ACEPHEX [Concomitant]
  12. LIPITOR [Concomitant]
  13. HYDROXYCHLOROQUINE SULFATE [Concomitant]
  14. FOLIC ACID [Concomitant]
  15. FOLGARD [Concomitant]
  16. IMBESOL [Concomitant]
  17. FOLTX [Concomitant]
  18. CELEBREX [Concomitant]
  19. CALCIUM [Concomitant]
  20. CHELATED MAGNESIUM [Concomitant]
  21. FISH OIL [Concomitant]
  22. NICOMIDE [Concomitant]
  23. GLUCOSAMINE CHONDRITIN [Concomitant]
  24. M.V.I. [Concomitant]

REACTIONS (6)
  - HYPERTENSION [None]
  - HYPOTENSION [None]
  - OSTEOMYELITIS [None]
  - SEPSIS [None]
  - SKIN DISCOLOURATION [None]
  - SKIN ULCER [None]
